FAERS Safety Report 8638403 (Version 5)
Quarter: 2013Q3

REPORT INFORMATION
  Report Type: Spontaneous
  Country: US (occurrence: US)
  Receive Date: 20120627
  Receipt Date: 20130806
  Transmission Date: 20140515
  Serious: Yes (Hospitalization)
  Sender: FDA-Public Use
  Company Number: US-GLAXOSMITHKLINE-A0982389A

PATIENT
  Age: 48 Year
  Sex: Female

DRUGS (1)
  1. FLOLAN [Suspect]
     Indication: PRODUCT USED FOR UNKNOWN INDICATION
     Dosage: 12NGKM CONTINUOUS
     Route: 042
     Dates: start: 20071231

REACTIONS (4)
  - Renal failure [Unknown]
  - Medical device complication [Unknown]
  - Treatment noncompliance [Unknown]
  - Medical device complication [Unknown]
